FAERS Safety Report 8237855-9 (Version None)
Quarter: 2012Q1

REPORT INFORMATION
  Report Type: 
  Country: None (occurrence: None)
  Receive Date: 20120327
  Receipt Date: 20120319
  Transmission Date: 20120608
  Serious: Yes (Other)
  Sender: FDA-Public Use
  Company Number: FR-AMGEN-FRASP2012017327

PATIENT

DRUGS (5)
  1. ARANESP [Suspect]
     Dosage: 60 MUG, QWK
     Dates: start: 20070101
  2. ARANESP [Suspect]
     Dosage: 150 MUG, QWK
  3. ARANESP [Suspect]
     Indication: PRODUCT USED FOR UNKNOWN INDICATION
     Dosage: UNK
  4. ARANESP [Suspect]
     Dosage: 100 MUG, QWK
  5. ARANESP [Suspect]
     Dosage: 140 MUG, QWK
     Dates: start: 20120104

REACTIONS (3)
  - APLASIA PURE RED CELL [None]
  - HAEMOGLOBIN DECREASED [None]
  - RETICULOCYTE COUNT INCREASED [None]
